FAERS Safety Report 20436110 (Version 8)
Quarter: 2024Q1

REPORT INFORMATION
  Report Type: Report from Study
  Country: US (occurrence: US)
  Receive Date: 20220207
  Receipt Date: 20240329
  Transmission Date: 20240410
  Serious: No
  Sender: FDA-Public Use
  Company Number: US-NOVARTISTESTPH-NVSC2022US025947

PATIENT
  Sex: Female

DRUGS (3)
  1. KESIMPTA [Suspect]
     Active Substance: OFATUMUMAB
     Indication: Multiple sclerosis
     Dosage: 20 MG, QW
     Route: 065
  2. KESIMPTA [Suspect]
     Active Substance: OFATUMUMAB
     Indication: Relapsing multiple sclerosis
     Dosage: UNK, QMO
     Route: 058
     Dates: start: 20211110
  3. KESIMPTA [Suspect]
     Active Substance: OFATUMUMAB
     Dosage: 0.4 ML, QMO
     Route: 058
     Dates: start: 20240325

REACTIONS (2)
  - Device issue [Unknown]
  - Device leakage [Unknown]
